FAERS Safety Report 4291721-2 (Version None)
Quarter: 2004Q1

REPORT INFORMATION
  Report Type: 
  Country: None (occurrence: None)
  Receive Date: 20040211
  Receipt Date: 20030113
  Transmission Date: 20041129
  Serious: No
  Sender: FDA-Public Use
  Company Number: US-GLAXOSMITHKLINE-A0392083A

PATIENT
  Sex: Male

DRUGS (4)
  1. IMITREX [Suspect]
     Indication: MIGRAINE
  2. PREDNISONE [Concomitant]
  3. TOPAMAX [Concomitant]
  4. ALCOHOL [Concomitant]

REACTIONS (1)
  - HEADACHE [None]
